FAERS Safety Report 8176701-9 (Version None)
Quarter: 2012Q1

REPORT INFORMATION
  Report Type: 
  Country: None (occurrence: None)
  Receive Date: 20120301
  Receipt Date: 20120217
  Transmission Date: 20120608
  Serious: Yes (Life-Threatening, Hospitalization)
  Sender: FDA-Public Use
  Company Number: US-ELI_LILLY_AND_COMPANY-US201202006005

PATIENT
  Sex: Female

DRUGS (3)
  1. SEROQUEL [Concomitant]
     Route: 064
  2. CYMBALTA [Suspect]
     Route: 064
  3. METOPROLOL SUCCINATE [Concomitant]
     Route: 064

REACTIONS (2)
  - NEONATAL RESPIRATORY DEPRESSION [None]
  - FOETAL EXPOSURE DURING PREGNANCY [None]
